FAERS Safety Report 16302635 (Version 5)
Quarter: 2025Q3

REPORT INFORMATION
  Report Type: Report from Study
  Country: EU (occurrence: EU)
  Receive Date: 20190513
  Receipt Date: 20250801
  Transmission Date: 20251021
  Serious: Yes (Hospitalization)
  Sender: AUROBINDO
  Company Number: None

PATIENT
  Age: 71 Year
  Sex: Female
  Weight: 80 kg

DRUGS (9)
  1. AMLODIPINE [Suspect]
     Active Substance: AMLODIPINE BESYLATE
     Indication: Product used for unknown indication
     Route: 048
  2. METOPROLOL [Suspect]
     Active Substance: METOPROLOL
     Indication: Hypertension
     Route: 048
  3. MODURETIC 5-50 [Suspect]
     Active Substance: AMILORIDE HYDROCHLORIDE\HYDROCHLOROTHIAZIDE
     Indication: Product used for unknown indication
     Route: 065
  4. HYDROCORTISONE [Suspect]
     Active Substance: HYDROCORTISONE
     Indication: Product used for unknown indication
     Route: 042
  5. ATORVASTATIN [Suspect]
     Active Substance: ATORVASTATIN
     Indication: Product used for unknown indication
     Route: 065
  6. LEVOTHYROXINE [Suspect]
     Active Substance: LEVOTHYROXINE
     Indication: Product used for unknown indication
     Dosage: 50 MICROGRAM, ONCE A DAY
     Route: 048
  7. LEVOTHYROXINE [Suspect]
     Active Substance: LEVOTHYROXINE
     Dosage: 100 MICROGRAM, ONCE A DAY
     Route: 048
  8. LEVOTHYROXINE [Suspect]
     Active Substance: LEVOTHYROXINE
     Dosage: 100 MICROGRAM, ONCE A DAY
     Route: 048
  9. LEVOTHYROXINE [Suspect]
     Active Substance: LEVOTHYROXINE
     Route: 065

REACTIONS (7)
  - Self esteem decreased [Unknown]
  - Constipation [Unknown]
  - Decreased appetite [Unknown]
  - Muscular weakness [Unknown]
  - Visual impairment [Unknown]
  - Myxoedema [Unknown]
  - No adverse event [Unknown]
